FAERS Safety Report 8743967 (Version 2)
Quarter: 2012Q4

REPORT INFORMATION
  Report Type: 
  Country: US (occurrence: US)
  Receive Date: 20120824
  Receipt Date: 20121019
  Transmission Date: 20130627
  Serious: Yes (Death, Other)
  Sender: FDA-Public Use
  Company Number: US-PFIZER INC-2012203625

PATIENT
  Age: 29 Year
  Sex: Male

DRUGS (5)
  1. VIAGRA [Suspect]
     Dosage: UNK
  2. ALCOHOL [Interacting]
     Dosage: UNK
  3. COCAINE [Interacting]
     Dosage: UNK
  4. XANAX [Concomitant]
  5. ADDERALL [Concomitant]

REACTIONS (5)
  - Overdose [Fatal]
  - Drug interaction [Unknown]
  - Epistaxis [Unknown]
  - Ear haemorrhage [Unknown]
  - Eye disorder [Unknown]
